FAERS Safety Report 8616561-2 (Version None)
Quarter: 2012Q3

REPORT INFORMATION
  Report Type: 
  Country: None (occurrence: None)
  Receive Date: 20120823
  Receipt Date: 20120816
  Transmission Date: 20120928
  Serious: Yes (Hospitalization)
  Sender: FDA-Public Use
  Company Number: FR-MERCK-1208FRA007420

PATIENT

DRUGS (2)
  1. STROMECTOL [Suspect]
     Indication: ACARODERMATITIS
     Dosage: 3 MG, ONCE
     Route: 048
     Dates: start: 20120301, end: 20120301
  2. STROMECTOL [Suspect]
     Dosage: 3 MG, ONCE
     Dates: start: 20111208, end: 20111208

REACTIONS (1)
  - PANCREATITIS ACUTE [None]
